FAERS Safety Report 5741128-3 (Version None)
Quarter: 2008Q2

REPORT INFORMATION
  Report Type: 
  Country: None (occurrence: None)
  Receive Date: 20080514
  Receipt Date: 20080508
  Transmission Date: 20081010
  Serious: Yes (Other)
  Sender: FDA-Public Use
  Company Number: CHPA2008US07877

PATIENT
  Age: 42 Year
  Sex: Male

DRUGS (1)
  1. EXCEDRIN PM (NCH)(ACETAMINOPHEN) (PARACETAMOL), DIPHENHYDRAMINE HYDROC [Suspect]
     Indication: INCORRECT DOSE ADMINISTERED
     Dosage: 48 DF, ONCE/SINGLE, ORAL
     Route: 048

REACTIONS (2)
  - OVERDOSE [None]
  - SUICIDE ATTEMPT [None]
